FAERS Safety Report 20541223 (Version 1)
Quarter: 2022Q1

REPORT INFORMATION
  Report Type: Report from Study
  Country: US (occurrence: US)
  Receive Date: 20220302
  Receipt Date: 20220302
  Transmission Date: 20220423
  Serious: Yes (Other)
  Sender: FDA-Public Use
  Company Number: US-JNJFOC-20211010140

PATIENT

DRUGS (1)
  1. DARATUMUMAB [Suspect]
     Active Substance: DARATUMUMAB
     Indication: Plasma cell myeloma
     Route: 042

REACTIONS (5)
  - Febrile neutropenia [Unknown]
  - Upper respiratory tract infection [Unknown]
  - Influenza [Unknown]
  - Nasopharyngitis [Unknown]
  - Lymphopenia [Unknown]
